FAERS Safety Report 21511742 (Version 6)
Quarter: 2023Q2

REPORT INFORMATION
  Report Type: Report from Study
  Country: US (occurrence: US)
  Receive Date: 20221027
  Receipt Date: 20230404
  Transmission Date: 20230721
  Serious: No
  Sender: FDA-Public Use
  Company Number: US-NOVARTISTESTPH-NVSC2022US241604

PATIENT
  Sex: Male

DRUGS (1)
  1. ENTRESTO [Suspect]
     Active Substance: SACUBITRIL\VALSARTAN
     Indication: Product used for unknown indication
     Dosage: 1 DOSAGE FORM, BID
     Route: 048

REACTIONS (9)
  - Hyperhidrosis [Unknown]
  - Feeling hot [Unknown]
  - Pain [Unknown]
  - Back pain [Unknown]
  - Faeces discoloured [Unknown]
  - Fatigue [Recovering/Resolving]
  - Cough [Unknown]
  - Dizziness [Unknown]
  - Hypotension [Not Recovered/Not Resolved]
